FAERS Safety Report 20203146 (Version 1)
Quarter: 2021Q4

REPORT INFORMATION
  Report Type: Spontaneous
  Country: US (occurrence: US)
  Receive Date: 20211218
  Receipt Date: 20211218
  Transmission Date: 20220303
  Serious: No
  Sender: FDA-Public Use
  Company Number: US-drreddys-SPO/USA/21/0144902

PATIENT
  Age: 68 Year
  Sex: Male

DRUGS (9)
  1. OMEPRAZOLE [Suspect]
     Active Substance: OMEPRAZOLE
     Indication: Product used for unknown indication
  2. COLCHICINE [Concomitant]
     Active Substance: COLCHICINE
     Indication: Mouth ulceration
  3. LORAZEPAM [Concomitant]
     Active Substance: LORAZEPAM
     Indication: Product used for unknown indication
  4. AMOXICILLIN\CLAVULANIC ACID [Concomitant]
     Active Substance: AMOXICILLIN\CLAVULANIC ACID
     Indication: Arthritis
  5. AMOXICILLIN\CLAVULANIC ACID [Concomitant]
     Active Substance: AMOXICILLIN\CLAVULANIC ACID
     Indication: Dermatosis
  6. OXYCODONE [Concomitant]
     Active Substance: OXYCODONE
     Indication: Mouth ulceration
  7. ACYCLOVIR [Concomitant]
     Active Substance: ACYCLOVIR
     Indication: Mouth ulceration
  8. CYCLOBENZAPRINE [Concomitant]
     Active Substance: CYCLOBENZAPRINE
     Indication: Neck pain
  9. METHYLPREDNISOLONE [Concomitant]
     Active Substance: METHYLPREDNISOLONE
     Indication: Mouth ulceration
     Route: 048

REACTIONS (1)
  - Eosinophilia [Unknown]
